FAERS Safety Report 19512488 (Version 1)
Quarter: 2021Q3

REPORT INFORMATION
  Report Type: Spontaneous
  Country: CA (occurrence: CA)
  Receive Date: 20210709
  Receipt Date: 20210709
  Transmission Date: 20211014
  Serious: Yes (Life-Threatening, Other)
  Sender: FDA-Public Use
  Company Number: CA-PURDUE-USA-2021-0274125

PATIENT
  Age: 9 Year
  Sex: Male
  Weight: 24 kg

DRUGS (4)
  1. BIPHENTIN [Suspect]
     Active Substance: METHYLPHENIDATE
     Dosage: 20 MG, DAILY
     Route: 048
  2. BIPHENTIN [Suspect]
     Active Substance: METHYLPHENIDATE
     Indication: ATTENTION DEFICIT HYPERACTIVITY DISORDER
     Dosage: 10 MG, DAILY
     Route: 048
  3. BIPHENTIN [Suspect]
     Active Substance: METHYLPHENIDATE
     Dosage: 10 MG, DAILY
     Route: 048
  4. BIPHENTIN [Suspect]
     Active Substance: METHYLPHENIDATE
     Dosage: 15 MG, DAILY
     Route: 048

REACTIONS (7)
  - Anxiety [Not Recovered/Not Resolved]
  - Panic reaction [Not Recovered/Not Resolved]
  - Agitation [Not Recovered/Not Resolved]
  - Intentional self-injury [Not Recovered/Not Resolved]
  - Feeling abnormal [Not Recovered/Not Resolved]
  - Aggression [Not Recovered/Not Resolved]
  - Suicide threat [Not Recovered/Not Resolved]
